FAERS Safety Report 8251200-4 (Version None)
Quarter: 2012Q2

REPORT INFORMATION
  Report Type: 
  Country: None (occurrence: None)
  Receive Date: 20120402
  Receipt Date: 20120322
  Transmission Date: 20120825
  Serious: Yes (Hospitalization, Disabling)
  Sender: FDA-Public Use
  Company Number: JP-MERCK-1201USA01062

PATIENT
  Age: 35 Year
  Sex: Male
  Weight: 80 kg

DRUGS (4)
  1. ACTOS [Concomitant]
     Indication: DIABETES MELLITUS
     Route: 048
  2. PROPECIA [Suspect]
     Indication: ANDROGENETIC ALOPECIA
     Route: 048
     Dates: start: 20110501, end: 20111216
  3. AMARYL [Concomitant]
     Indication: DIABETES MELLITUS
     Dosage: DAILY DOSAGE UNKNOWN
     Route: 048
  4. VOGLIBOSE [Concomitant]
     Indication: DIABETES MELLITUS
     Route: 048

REACTIONS (3)
  - TRANSVERSE SINUS THROMBOSIS [None]
  - SUPERIOR SAGITTAL SINUS THROMBOSIS [None]
  - CEREBRAL HAEMORRHAGE [None]
